FAERS Safety Report 4947332-6 (Version None)
Quarter: 2006Q1

REPORT INFORMATION
  Report Type: 
  Country: None (occurrence: None)
  Receive Date: 20060317
  Receipt Date: 20060307
  Transmission Date: 20060701
  Serious: Yes (Hospitalization)
  Sender: FDA-Public Use
  Company Number: FR-ABBOTT-06P-056-0327378-00

PATIENT
  Sex: Female

DRUGS (4)
  1. DEPAKOTE [Suspect]
     Indication: DYSTHYMIC DISORDER
     Route: 048
     Dates: start: 20060119, end: 20060131
  2. DEPAKOTE [Suspect]
  3. ZOPICLONE [Concomitant]
     Indication: INSOMNIA
     Route: 048
     Dates: start: 20051028
  4. TIAPROFENIC ACID [Concomitant]
     Indication: BACK PAIN
     Route: 048
     Dates: start: 20060119, end: 20060125

REACTIONS (6)
  - ABDOMINAL PAIN [None]
  - FLATULENCE [None]
  - HEPATITIS [None]
  - HYPERBILIRUBINAEMIA [None]
  - PHOTOPHOBIA [None]
  - TREMOR [None]
